FAERS Safety Report 10211258 (Version 1)
Quarter: 2014Q2

REPORT INFORMATION
  Report Type: Spontaneous
  Country: CA (occurrence: CA)
  Receive Date: 20140602
  Receipt Date: 20140602
  Transmission Date: 20141212
  Serious: Yes (Hospitalization)
  Sender: FDA-Public Use
  Company Number: CA-GLAXOSMITHKLINE-A1074391A

PATIENT
  Age: 72 Year
  Sex: Female
  Weight: 81.8 kg

DRUGS (12)
  1. ADVAIR HFA [Suspect]
     Indication: CHRONIC OBSTRUCTIVE PULMONARY DISEASE
     Dosage: 1PUFF TWICE PER DAY
     Route: 055
  2. ADVAIR HFA [Suspect]
     Indication: CHRONIC OBSTRUCTIVE PULMONARY DISEASE
     Dosage: 2PUFF TWICE PER DAY
     Route: 055
  3. SALBUTAMOL [Suspect]
     Indication: PRODUCT USED FOR UNKNOWN INDICATION
     Route: 065
  4. SPIRIVA [Concomitant]
  5. FLOVENT [Concomitant]
  6. OXEZE [Concomitant]
  7. SALBUTAMOL [Concomitant]
  8. OXYGEN [Concomitant]
  9. FLONASE [Concomitant]
  10. SLEEPING PILL [Concomitant]
  11. THYROID MEDICATION [Concomitant]
  12. MEDICATION FOR FLUID RETENTION [Concomitant]

REACTIONS (9)
  - Lung infection [Unknown]
  - Palpitations [Unknown]
  - Dysphonia [Unknown]
  - Decreased appetite [Unknown]
  - Fatigue [Unknown]
  - Dyspnoea [Unknown]
  - Nausea [Unknown]
  - Productive cough [Unknown]
  - Oxygen saturation decreased [Unknown]
